FAERS Safety Report 10694019 (Version 1)
Quarter: 2015Q1

REPORT INFORMATION
  Report Type: Spontaneous
  Country: AT (occurrence: AT)
  Receive Date: 20150106
  Receipt Date: 20150106
  Transmission Date: 20150721
  Serious: Yes (Hospitalization)
  Sender: FDA-Public Use
  Company Number: AT-UNITED THERAPEUTICS-UNT-2014-012957

PATIENT
  Age: 82 Year
  Sex: Female

DRUGS (1)
  1. REMODULIN [Suspect]
     Active Substance: TREPROSTINIL
     Indication: PRODUCT USED FOR UNKNOWN INDICATION
     Dosage: 0.28 ?G/KG, CONTINUING
     Route: 058
     Dates: start: 201009

REACTIONS (4)
  - Oxygen saturation decreased [Unknown]
  - Oedema peripheral [Unknown]
  - Fatigue [Unknown]
  - General physical health deterioration [Unknown]

NARRATIVE: CASE EVENT DATE: 20141227
